FAERS Safety Report 19631475 (Version 1)
Quarter: 2021Q3

REPORT INFORMATION
  Report Type: Spontaneous
  Country: US (occurrence: US)
  Receive Date: 20210728
  Receipt Date: 20210728
  Transmission Date: 20211014
  Serious: Yes (Other)
  Sender: FDA-Public Use
  Company Number: US-ROCHE-2634495

PATIENT
  Sex: Female

DRUGS (2)
  1. XELODA [Suspect]
     Active Substance: CAPECITABINE
     Indication: BREAST CANCER FEMALE
     Route: 048
  2. TUCATINIB [Suspect]
     Active Substance: TUCATINIB
     Indication: BREAST CANCER FEMALE
     Route: 065

REACTIONS (6)
  - Pain [Recovered/Resolved]
  - Neuropathy peripheral [Unknown]
  - Skin discolouration [Recovered/Resolved]
  - Fatigue [Unknown]
  - Electrolyte imbalance [Unknown]
  - Diarrhoea [Unknown]
